FAERS Safety Report 5339575-7 (Version None)
Quarter: 2007Q2

REPORT INFORMATION
  Report Type: 
  Country: None (occurrence: None)
  Receive Date: 20070525
  Receipt Date: 20070518
  Transmission Date: 20071010
  Serious: Yes (Other)
  Sender: FDA-Public Use
  Company Number: E2090-00243-SPO-US

PATIENT
  Sex: Male

DRUGS (1)
  1. ZONEGRAN [Suspect]
     Dosage: ORAL
     Route: 048

REACTIONS (2)
  - CONVULSION [None]
  - LOSS OF CONSCIOUSNESS [None]
